FAERS Safety Report 20895973 (Version 1)
Quarter: 2022Q2

REPORT INFORMATION
  Report Type: Report from Study
  Country: BE (occurrence: BE)
  Receive Date: 20220531
  Receipt Date: 20220531
  Transmission Date: 20220720
  Serious: Yes (Life-Threatening, Hospitalization)
  Sender: FDA-Public Use
  Company Number: BE-SERVIER-S22005340

PATIENT
  Age: 75 Year
  Sex: Male
  Weight: 62.5 kg

DRUGS (8)
  1. LONSURF [Suspect]
     Active Substance: TIPIRACIL HYDROCHLORIDE\TRIFLURIDINE
     Indication: Colorectal cancer metastatic
     Dosage: 70 MG/M2, DAILY, ON DAYS 1-5 AND 8-12 OF EACH 28-DAY CYCLE
     Route: 048
     Dates: start: 20220503
  2. ASPIRIN [Concomitant]
     Active Substance: ASPIRIN
     Indication: Cerebrovascular accident
     Dosage: 80 MG, QD
     Route: 065
     Dates: start: 20140519
  3. TRAZODONE [Concomitant]
     Active Substance: TRAZODONE HYDROCHLORIDE
     Indication: Insomnia
     Dosage: 100 MG, QD
     Route: 065
     Dates: start: 20140101
  4. PERINDOPRIL [Concomitant]
     Active Substance: PERINDOPRIL
     Indication: Acute myocardial infarction
     Dosage: 5 MG, QD
     Route: 065
     Dates: start: 20161224
  5. LOPERAMIDE [Concomitant]
     Active Substance: LOPERAMIDE
     Indication: Diarrhoea
     Dosage: 2 MG, PRN
     Route: 065
     Dates: start: 20210824
  6. LYRICA [Concomitant]
     Active Substance: PREGABALIN
     Indication: Neuropathy peripheral
     Dosage: 150 MG, QD
     Route: 065
     Dates: start: 20220426
  7. Tradonal odis [Concomitant]
     Indication: Pain
     Dosage: 50 MG, PRN
     Route: 065
     Dates: start: 20220419
  8. Tradonal odis [Concomitant]
     Indication: Abdominal pain upper
     Dosage: 150 MG, BID
     Route: 065
     Dates: start: 20220503

REACTIONS (1)
  - Upper gastrointestinal haemorrhage [Not Recovered/Not Resolved]

NARRATIVE: CASE EVENT DATE: 20220517
